FAERS Safety Report 12111571 (Version 2)
Quarter: 2016Q2

REPORT INFORMATION
  Report Type: Spontaneous
  Country: US (occurrence: US)
  Receive Date: 20160224
  Receipt Date: 20160413
  Transmission Date: 20160815
  Serious: No
  Sender: FDA-Public Use
  Company Number: US-JAZZ-2015-US-017254

PATIENT
  Age: 42 Year
  Sex: Female

DRUGS (4)
  1. K-DUR [Concomitant]
     Active Substance: POTASSIUM CHLORIDE
  2. PRIALT [Suspect]
     Active Substance: ZICONOTIDE ACETATE
     Indication: COMPLEX REGIONAL PAIN SYNDROME
     Dosage: UNK ?G, UNK
     Route: 037
  3. GABAPENTIN. [Concomitant]
     Active Substance: GABAPENTIN
  4. PRIALT [Suspect]
     Active Substance: ZICONOTIDE ACETATE
     Indication: PAIN

REACTIONS (2)
  - Device issue [Recovered/Resolved]
  - No adverse event [Recovered/Resolved]

NARRATIVE: CASE EVENT DATE: 20151016
